FAERS Safety Report 5441587-X (Version None)
Quarter: 2007Q3

REPORT INFORMATION
  Report Type: 
  Country: None (occurrence: None)
  Receive Date: 20070829
  Receipt Date: 20070820
  Transmission Date: 20080115
  Serious: Yes (Hospitalization)
  Sender: FDA-Public Use
  Company Number: 2007-156244-NL

PATIENT
  Age: 29 Year
  Sex: Female

DRUGS (2)
  1. ETONOGESTREL [Suspect]
     Indication: CONTRACEPTION
     Dosage: DF
  2. ETONOGESTREL [Suspect]
     Indication: MIGRAINE
     Dosage: DF

REACTIONS (17)
  - ACQUIRED DIAPHRAGMATIC EVENTRATION [None]
  - ATELECTASIS [None]
  - BLOOD LACTATE DEHYDROGENASE INCREASED [None]
  - BLOOD PH INCREASED [None]
  - BRONCHITIS CHRONIC [None]
  - BRONCHOPNEUMONIA [None]
  - FIBRIN D DIMER INCREASED [None]
  - LOBAR PNEUMONIA [None]
  - PCO2 DECREASED [None]
  - PLEURAL EFFUSION [None]
  - PLEURISY [None]
  - PO2 DECREASED [None]
  - PULMONARY EMBOLISM [None]
  - THROMBOCYTHAEMIA [None]
  - URINARY CASTS [None]
  - URINE ANALYSIS ABNORMAL [None]
  - WHITE BLOOD CELLS URINE POSITIVE [None]
